FAERS Safety Report 8434250-4 (Version None)
Quarter: 2012Q2

REPORT INFORMATION
  Report Type: 
  Country: None (occurrence: None)
  Receive Date: 20120613
  Receipt Date: 20120530
  Transmission Date: 20120825
  Serious: No
  Sender: FDA-Public Use
  Company Number: US-ASTRAZENECA-2012SE36468

PATIENT
  Age: 56 Year
  Sex: Male

DRUGS (2)
  1. ADVAIR DISKUS 100/50 [Concomitant]
  2. SYMBICORT [Suspect]
     Route: 055

REACTIONS (2)
  - CHEST DISCOMFORT [None]
  - INSOMNIA [None]
